FAERS Safety Report 4690620-1 (Version None)
Quarter: 2005Q2

REPORT INFORMATION
  Report Type: 
  Country: None (occurrence: None)
  Receive Date: 20050615
  Receipt Date: 20050606
  Transmission Date: 20051028
  Serious: Yes (Other)
  Sender: FDA-Public Use
  Company Number: JP-BRISTOL-MYERS SQUIBB COMPANY-12995452

PATIENT
  Age: 17 Month
  Sex: Male

DRUGS (3)
  1. PARAPLATIN [Suspect]
     Indication: HEPATOBLASTOMA
     Route: 042
  2. RANDA [Suspect]
     Indication: HEPATOBLASTOMA
     Route: 042
  3. PIRARUBICIN [Suspect]
     Indication: HEPATOBLASTOMA
     Route: 042

REACTIONS (2)
  - ACUTE MYELOMONOCYTIC LEUKAEMIA [None]
  - MYELODYSPLASTIC SYNDROME [None]
